FAERS Safety Report 9768877 (Version 1)
Quarter: 2013Q3

REPORT INFORMATION
  Report Type: Spontaneous
  Country: US (occurrence: None)
  Receive Date: 20130903
  Receipt Date: 20130903
  Transmission Date: 20140515
  Serious: Yes (Hospitalization)
  Sender: FDA-Public Use
  Company Number: 91433

PATIENT
  Age: 68 Year
  Sex: Male
  Weight: 101 kg

DRUGS (1)
  1. CISPLATIN [Suspect]
     Indication: OESOPHAGEAL CARCINOMA
     Dates: start: 20130728

REACTIONS (13)
  - Decreased appetite [None]
  - Hyponatraemia [None]
  - Hypomagnesaemia [None]
  - Dehydration [None]
  - Fatigue [None]
  - Mucosal inflammation [None]
  - Dysphagia [None]
  - Anaemia [None]
  - Failure to thrive [None]
  - Asthenia [None]
  - Odynophagia [None]
  - Stomatitis [None]
  - Toxicity to various agents [None]
